FAERS Safety Report 14204568 (Version 1)
Quarter: 2017Q4

REPORT INFORMATION
  Report Type: Spontaneous
  Country: US (occurrence: None)
  Receive Date: 20171117
  Receipt Date: 20171117
  Transmission Date: 20180321
  Serious: Yes (Hospitalization, Other)
  Sender: FDA-Public Use
  Company Number: None

PATIENT
  Age: 44 Year
  Sex: Male

DRUGS (1)
  1. AMOXICILLIN/CLAVULANATE [Suspect]
     Active Substance: AMOXICILLIN\CLAVULANATE POTASSIUM
     Dates: start: 20141219, end: 20141228

REACTIONS (20)
  - Cholestasis [None]
  - Deep vein thrombosis [None]
  - Cholangitis [None]
  - Pulmonary embolism [None]
  - Drug-induced liver injury [None]
  - Pericarditis [None]
  - Hypersensitivity vasculitis [None]
  - Faeces discoloured [None]
  - Blood alkaline phosphatase increased [None]
  - Disseminated cryptococcosis [None]
  - Abdominal pain [None]
  - Aspartate aminotransferase increased [None]
  - Ascites [None]
  - Meningitis cryptococcal [None]
  - Dermatitis [None]
  - Alanine aminotransferase increased [None]
  - Gastrointestinal wall thickening [None]
  - Pneumonitis [None]
  - Nausea [None]
  - Hypereosinophilic syndrome [None]

NARRATIVE: CASE EVENT DATE: 20150126
